FAERS Safety Report 8131655-6 (Version None)
Quarter: 2012Q1

REPORT INFORMATION
  Report Type: 
  Country: None (occurrence: None)
  Receive Date: 20120103
  Receipt Date: 20111010
  Transmission Date: 20120608
  Serious: No
  Sender: FDA-Public Use
  Company Number: AE-2011-001180

PATIENT
  Age: 55 Year
  Sex: Female
  Weight: 62.5964 kg

DRUGS (10)
  1. RIBAVIRIN [Concomitant]
  2. PEGASYS [Concomitant]
  3. VICOPROFEN (HYDROCODONE W/IBUPROFEN) [Concomitant]
  4. ASPIRIN [Concomitant]
  5. XANAX [Concomitant]
  6. AMBIEN [Concomitant]
  7. INCIVEK [Suspect]
     Dosage: (3 IN 1 D)
     Dates: start: 20110822
  8. OXYCODONE HCL [Concomitant]
  9. WELLBUTRIN [Concomitant]
  10. PRISTIQ [Concomitant]

REACTIONS (2)
  - MYALGIA [None]
  - FATIGUE [None]
